FAERS Safety Report 21393720 (Version 1)
Quarter: 2022Q3

REPORT INFORMATION
  Report Type: Spontaneous
  Country: PT (occurrence: PT)
  Receive Date: 20220930
  Receipt Date: 20220930
  Transmission Date: 20221026
  Serious: Yes (Other)
  Sender: FDA-Public Use
  Company Number: PT-INFARMED-J202209-709

PATIENT
  Age: 66 Year
  Sex: Female

DRUGS (1)
  1. AMOXICILLIN [Suspect]
     Active Substance: AMOXICILLIN
     Indication: Bursitis
     Dosage: UNK
     Route: 048
     Dates: start: 201707

REACTIONS (7)
  - Face oedema [Recovered/Resolved]
  - Skin exfoliation [Recovered/Resolved]
  - Cough [Recovered/Resolved]
  - Dry skin [Recovered/Resolved]
  - Angioedema [Recovered/Resolved]
  - Oropharyngeal discomfort [Recovered/Resolved]
  - Lip oedema [Recovered/Resolved]

NARRATIVE: CASE EVENT DATE: 20170701
